FAERS Safety Report 10751407 (Version 1)
Quarter: 2015Q1

REPORT INFORMATION
  Report Type: Spontaneous
  Country: US (occurrence: None)
  Receive Date: 20150129
  Receipt Date: 20150129
  Transmission Date: 20150721
  Serious: Yes (Hospitalization)
  Sender: FDA-Public Use
  Company Number: None

PATIENT
  Age: 59 Year
  Sex: Male
  Weight: 79.38 kg

DRUGS (3)
  1. NOVOLOG SLIDING SCALE [Concomitant]
  2. LEVEMIR [Concomitant]
     Active Substance: INSULIN DETEMIR
  3. RANIBIZUMAB [Suspect]
     Active Substance: RANIBIZUMAB
     Indication: DIABETIC RETINAL OEDEMA
     Dosage: 0.3 MG, MONTHLY, INTRAVITREAL
     Dates: start: 20131218, end: 20141029

REACTIONS (4)
  - Multiple fractures [None]
  - Spinal fracture [None]
  - Accident [None]
  - Fall [None]

NARRATIVE: CASE EVENT DATE: 20141111
